FAERS Safety Report 4917244-2 (Version None)
Quarter: 2006Q1

REPORT INFORMATION
  Report Type: 
  Country: None (occurrence: None)
  Receive Date: 20060221
  Receipt Date: 20051123
  Transmission Date: 20060701
  Serious: Yes (Other)
  Sender: FDA-Public Use
  Company Number: US-MERCK-0511USA04238

PATIENT
  Age: 29 Year
  Sex: Female
  Weight: 77 kg

DRUGS (2)
  1. VIOXX [Suspect]
     Route: 048
     Dates: start: 20031101, end: 20031201
  2. DEPO-PROVERA [Concomitant]
     Route: 051

REACTIONS (4)
  - CEREBROVASCULAR ACCIDENT [None]
  - CHEST PAIN [None]
  - HEART RATE INCREASED [None]
  - PRESCRIBED OVERDOSE [None]
